FAERS Safety Report 9405427 (Version 1)
Quarter: 2013Q3

REPORT INFORMATION
  Report Type: Spontaneous
  Country: GB (occurrence: GB)
  Receive Date: 20130717
  Receipt Date: 20130717
  Transmission Date: 20140515
  Serious: Yes (Other)
  Sender: FDA-Public Use
  Company Number: GB-WATSON-2013-12613

PATIENT
  Sex: 0

DRUGS (4)
  1. CITALOPRAM HYDROBROMIDE (UNKNOWN) [Suspect]
     Indication: PRODUCT USED FOR UNKNOWN INDICATION
     Dosage: 30 MG, UNKNOWN
     Route: 048
     Dates: start: 2011
  2. CLOZARIL [Suspect]
     Indication: SCHIZOPHRENIA, PARANOID TYPE
     Dosage: UNK
     Route: 048
     Dates: start: 20010701
  3. CLOZARIL [Suspect]
     Dosage: 200 MG, UNKNOWN
     Route: 065
     Dates: start: 2008
  4. HYOSCINE HYDROBROMIDE [Suspect]
     Indication: SALIVARY HYPERSECRETION
     Dosage: 300 MG, UNKNOWN
     Route: 065

REACTIONS (1)
  - Haemoglobin decreased [Unknown]
